FAERS Safety Report 13803119 (Version 1)
Quarter: 2017Q3

REPORT INFORMATION
  Report Type: Spontaneous
  Country: US (occurrence: US)
  Receive Date: 20170727
  Receipt Date: 20170727
  Transmission Date: 20171127
  Serious: Yes (Death)
  Sender: FDA-Public Use
  Company Number: None

PATIENT
  Age: 72 Year
  Sex: Female

DRUGS (1)
  1. THALOMID [Suspect]
     Active Substance: THALIDOMIDE
     Indication: CONGENITAL GASTROINTESTINAL VESSEL ANOMALY
     Route: 048

REACTIONS (6)
  - Hernia [None]
  - Brain stem syndrome [None]
  - Aphasia [None]
  - Unresponsive to stimuli [None]
  - Bundle branch block left [None]
  - Dysphemia [None]

NARRATIVE: CASE EVENT DATE: 20150205
